FAERS Safety Report 10039759 (Version 1)
Quarter: 2014Q1

REPORT INFORMATION
  Report Type: Spontaneous
  Country: FR (occurrence: FR)
  Receive Date: 20140326
  Receipt Date: 20140326
  Transmission Date: 20141002
  Serious: Yes (Hospitalization)
  Sender: FDA-Public Use
  Company Number: FR-PFIZER INC-2014080007

PATIENT
  Age: 53 Year
  Sex: Female

DRUGS (8)
  1. PANTOPRAZOLE [Suspect]
     Dosage: 40 MG, DAILY
     Route: 048
     Dates: start: 20140117, end: 20140220
  2. LYRICA [Suspect]
     Dosage: 300 MG, DAILY
     Route: 048
     Dates: start: 20131016
  3. TRAMADOL HYDROCHLORIDE AUROBINDO [Suspect]
     Indication: PAIN
     Dosage: 300 MG, DAILY
     Route: 048
     Dates: start: 20131016
  4. RIFATER [Suspect]
     Indication: TUBERCULOSIS
     Dosage: 6 DF, DAILY
     Route: 048
     Dates: start: 20140206, end: 20140220
  5. ETHAMBUTOL HYDROCHLORIDE [Suspect]
     Indication: TUBERCULOSIS
     Dosage: 1500 MG, DAILY
     Route: 048
     Dates: start: 20140206, end: 20140220
  6. THIOCOLCHICOSIDE [Suspect]
     Indication: PAIN
     Dosage: 12 MG, DAILY
     Dates: start: 20140117, end: 20140215
  7. PARACETAMOL [Concomitant]
     Dosage: 1000 MG, 3X/DAY
  8. UVEDOSE [Concomitant]

REACTIONS (5)
  - Neutropenia [Recovered/Resolved]
  - Hepatocellular injury [Recovered/Resolved]
  - Full blood count abnormal [Recovered/Resolved]
  - Pyrexia [Recovered/Resolved]
  - Thrombocytopenia [Recovered/Resolved]
